FAERS Safety Report 9085701 (Version 1)
Quarter: 2013Q1

REPORT INFORMATION
  Report Type: Spontaneous
  Country: BR (occurrence: BR)
  Receive Date: 20130218
  Receipt Date: 20130218
  Transmission Date: 20140127
  Serious: Yes (Other)
  Sender: FDA-Public Use
  Company Number: PHHY2012BR109923

PATIENT
  Age: 52 Year
  Sex: Female

DRUGS (7)
  1. MIFLONIDE [Suspect]
     Indication: CHRONIC OBSTRUCTIVE PULMONARY DISEASE
     Dosage: 1 DF, BID (1 CAPSULE IN THE MORNING AND 1 CAPSULE AT NIGHT))
  2. FORASEQ [Suspect]
     Indication: CHRONIC OBSTRUCTIVE PULMONARY DISEASE
  3. FORADIL [Suspect]
  4. COMADIN [Concomitant]
     Dosage: 1 TABLET DAILY
     Route: 048
  5. BENICAR HCT [Concomitant]
     Dosage: 1 TABLET DAILY
     Route: 048
  6. DIGOBAL [Concomitant]
     Dosage: 1 TABLET DAILY
     Route: 048
  7. VERPAMIL [Concomitant]
     Dosage: 1 DF (HALF TABLET IN MORNING AND HALF TABLET AT NIGHT)

REACTIONS (6)
  - Bronchitis [Not Recovered/Not Resolved]
  - Abasia [Unknown]
  - Heart rate abnormal [Unknown]
  - Dysgeusia [Unknown]
  - Malaise [Not Recovered/Not Resolved]
  - Dyspnoea [Unknown]
